FAERS Safety Report 5155928-4 (Version None)
Quarter: 2006Q4

REPORT INFORMATION
  Report Type: 
  Country: None (occurrence: None)
  Receive Date: 20061114
  Receipt Date: 20061029
  Transmission Date: 20070319
  Serious: Yes (Other)
  Sender: FDA-Public Use
  Company Number: 2006112063

PATIENT
  Age: 63 Year
  Sex: Male
  Weight: 78.0187 kg

DRUGS (9)
  1. SUTENT [Suspect]
     Indication: RENAL CELL CARCINOMA STAGE UNSPECIFIED
     Dosage: 50 MG (50 MG, 1 IN 1 D), ORAL
     Route: 048
     Dates: start: 20060815
  2. BETASERON (ALBUMIN HUMAN, GLUCOSE, INTERFERON, BETA) [Concomitant]
  3. VYTORIN [Concomitant]
  4. XANAX [Concomitant]
  5. CELEXA [Concomitant]
  6. BENICAR (OLEMSARTAN MEDOXOMIL) [Concomitant]
  7. ZOCOR [Concomitant]
  8. PRILOSEC [Concomitant]
  9. TAMSULOSIN HCL [Concomitant]

REACTIONS (11)
  - ASTHENIA [None]
  - BALANCE DISORDER [None]
  - COUGH [None]
  - DYSSTASIA [None]
  - FALL [None]
  - FATIGUE [None]
  - HEPATIC ENZYME INCREASED [None]
  - LABORATORY TEST ABNORMAL [None]
  - MALAISE [None]
  - PARALYSIS [None]
  - PLATELET COUNT DECREASED [None]
